FAERS Safety Report 23802613 (Version 2)
Quarter: 2024Q2

REPORT INFORMATION
  Report Type: Spontaneous
  Country: US (occurrence: None)
  Receive Date: 20240501
  Receipt Date: 20240503
  Transmission Date: 20240716
  Serious: Yes (Other)
  Sender: FDA-Public Use
  Company Number: 2024A098649

PATIENT
  Age: 66 Year
  Sex: Male

DRUGS (1)
  1. BREZTRI [Suspect]
     Active Substance: BUDESONIDE\FORMOTEROL\GLYCOPYRROLATE
     Indication: Chronic obstructive pulmonary disease
     Dosage: 160MCG/4.8 MCG 2 PUFF 2 TI
     Route: 055
     Dates: start: 20220822, end: 20240419

REACTIONS (11)
  - Oesophageal disorder [Unknown]
  - Heart rate increased [Unknown]
  - Illness [Unknown]
  - Vomiting [Unknown]
  - Throat tightness [Unknown]
  - Eating disorder [Unknown]
  - Weight decreased [Unknown]
  - Pharyngeal swelling [Unknown]
  - Gastrooesophageal reflux disease [Unknown]
  - Dehydration [Unknown]
  - Product dose omission issue [Unknown]
